FAERS Safety Report 7001756-4 (Version None)
Quarter: 2010Q3

REPORT INFORMATION
  Report Type: 
  Country: None (occurrence: None)
  Receive Date: 20100920
  Receipt Date: 20100616
  Transmission Date: 20110219
  Serious: No
  Sender: FDA-Public Use
  Company Number: US-ASTRAZENECA-2010SE29080

PATIENT
  Sex: Male

DRUGS (3)
  1. SEROQUEL [Suspect]
     Route: 048
     Dates: start: 19990101
  2. TRILEPTAL [Concomitant]
     Dates: start: 20010725
  3. TOPAMAX [Concomitant]
     Indication: MOOD ALTERED
     Dosage: 25-50
     Dates: start: 20010725

REACTIONS (4)
  - BIPOLAR I DISORDER [None]
  - HEPATITIS C [None]
  - TYPE 2 DIABETES MELLITUS [None]
  - WEIGHT INCREASED [None]
